FAERS Safety Report 9101740 (Version 1)
Quarter: 2013Q1

REPORT INFORMATION
  Report Type: Spontaneous
  Country: US (occurrence: US)
  Receive Date: 20130218
  Receipt Date: 20130218
  Transmission Date: 20140127
  Serious: No
  Sender: FDA-Public Use
  Company Number: US-BAYER-2013-020517

PATIENT
  Sex: 0

DRUGS (3)
  1. ALEVE CAPLET/TABLET,MIDOL EXTENDED RELIEF CAPLET [Suspect]
     Dosage: 9 DF, ONCE, USED ONLY ONE TIME
     Dates: start: 20130214, end: 20130214
  2. IBUPROFEN [Concomitant]
     Dosage: 5
  3. TYLENOL NOS [Concomitant]
     Dosage: 1

REACTIONS (1)
  - Overdose [None]
